FAERS Safety Report 22007878 (Version 1)
Quarter: 2023Q1

REPORT INFORMATION
  Report Type: Spontaneous
  Country: US (occurrence: US)
  Receive Date: 20230218
  Receipt Date: 20230218
  Transmission Date: 20230418
  Serious: No
  Sender: FDA-Public Use
  Company Number: US-GE HEALTHCARE-2023CSU000237

PATIENT
  Sex: Male

DRUGS (2)
  1. INDIUM IN-111 OXYQUINOLINE [Suspect]
     Active Substance: INDIUM IN-111 OXYQUINOLINE
     Indication: Diagnostic procedure
     Dosage: UNK UNK, SINGLE
     Route: 037
     Dates: start: 20230103, end: 20230103
  2. INDIUM IN-111 OXYQUINOLINE [Suspect]
     Active Substance: INDIUM IN-111 OXYQUINOLINE
     Indication: Product used for unknown indication

REACTIONS (2)
  - Wrong product administered [Recovered/Resolved]
  - No adverse event [Recovered/Resolved]

NARRATIVE: CASE EVENT DATE: 20230103
